FAERS Safety Report 20660479 (Version 1)
Quarter: 2022Q1

REPORT INFORMATION
  Report Type: Spontaneous
  Country: US (occurrence: US)
  Receive Date: 20220331
  Receipt Date: 20220331
  Transmission Date: 20220423
  Serious: No
  Sender: FDA-Public Use
  Company Number: US-PFIZER INC-2021814653

PATIENT
  Age: 71 Year
  Sex: Female

DRUGS (1)
  1. INLYTA [Suspect]
     Active Substance: AXITINIB
     Dosage: 5 MG
     Dates: start: 20210615

REACTIONS (4)
  - Fatigue [Unknown]
  - Rash [Unknown]
  - Skin exfoliation [Unknown]
  - Dysphonia [Unknown]

NARRATIVE: CASE EVENT DATE: 20210601
